FAERS Safety Report 6356610-8 (Version None)
Quarter: 2009Q3

REPORT INFORMATION
  Report Type: 
  Country: None (occurrence: None)
  Receive Date: 20090910
  Receipt Date: 20090910
  Transmission Date: 20100115
  Serious: Yes (Hospitalization)
  Sender: FDA-Public Use
  Company Number: None

PATIENT
  Age: 25 Year
  Sex: Female
  Weight: 61.2356 kg

DRUGS (1)
  1. FLUOXETINE [Suspect]
     Indication: DEPRESSION
     Dosage: 20 MG 1 PER DAY PO
     Route: 048
     Dates: start: 20040101, end: 20040831

REACTIONS (5)
  - ANORGASMIA [None]
  - CONDITION AGGRAVATED [None]
  - LOSS OF LIBIDO [None]
  - MAJOR DEPRESSION [None]
  - SUICIDAL IDEATION [None]
